FAERS Safety Report 6966380-8 (Version None)
Quarter: 2010Q3

REPORT INFORMATION
  Report Type: 
  Country: None (occurrence: None)
  Receive Date: 20100903
  Receipt Date: 20100826
  Transmission Date: 20110219
  Serious: Yes (Death, Hospitalization)
  Sender: FDA-Public Use
  Company Number: CA-AMGEN-QUU434110

PATIENT
  Sex: Male
  Weight: 81.8 kg

DRUGS (6)
  1. NEULASTA [Suspect]
     Indication: CHEMOTHERAPY
     Route: 058
     Dates: start: 20100604, end: 20100604
  2. DOXORUBICIN HCL [Concomitant]
     Dates: start: 20100603
  3. CYTOXAN [Concomitant]
     Dates: start: 20100603
  4. VINCRISTINE [Concomitant]
     Dates: start: 20100603
  5. PREDNISONE [Concomitant]
     Dates: start: 20100603
  6. RITUXAN [Concomitant]
     Dates: start: 20100603

REACTIONS (2)
  - FEBRILE NEUTROPENIA [None]
  - SEPTIC SHOCK [None]
